FAERS Safety Report 8074569-2 (Version None)
Quarter: 2012Q1

REPORT INFORMATION
  Report Type: 
  Country: None (occurrence: None)
  Receive Date: 20120120
  Receipt Date: 20120104
  Transmission Date: 20120608
  Serious: Yes (Other)
  Sender: FDA-Public Use
  Company Number: 1145752

PATIENT
  Age: 14 Month
  Sex: Male

DRUGS (4)
  1. SODIUM CHLORIDE [Concomitant]
  2. HEPARIN SODIUM [Concomitant]
  3. CARBOPLATIN [Suspect]
     Indication: RETINOBLASTOMA UNILATERAL
     Dosage: 30 MG, INTRA-ARTERIAL
     Route: 013
  4. MELPHALAN HYDROCHLORIDE [Suspect]
     Indication: RETINOBLASTOMA UNILATERAL
     Dosage: 5 MG, INTRA-ARTERIAL

REACTIONS (5)
  - OCULAR VASCULAR DISORDER [None]
  - RETINAL ARTERY OCCLUSION [None]
  - RETINAL PIGMENT EPITHELIOPATHY [None]
  - CHORIORETINAL ATROPHY [None]
  - OPTIC ATROPHY [None]
